FAERS Safety Report 6331454-1 (Version None)
Quarter: 2009Q3

REPORT INFORMATION
  Report Type: 
  Country: None (occurrence: None)
  Receive Date: 20090827
  Receipt Date: 20090818
  Transmission Date: 20100115
  Serious: Yes (Hospitalization, Other)
  Sender: FDA-Public Use
  Company Number: CH-ROCHE-650950

PATIENT
  Age: 59 Year
  Weight: 81.5 kg

DRUGS (3)
  1. CAPECITABINE [Suspect]
     Indication: DRUG USE FOR UNKNOWN INDICATION
     Route: 048
     Dates: start: 20080101, end: 20081217
  2. CAPECITABINE [Suspect]
     Route: 048
     Dates: start: 20090105, end: 20090101
  3. VOLTAREN [Concomitant]
     Dates: start: 20090101

REACTIONS (3)
  - ASCITES [None]
  - DIARRHOEA [None]
  - MALIGNANT NEOPLASM PROGRESSION [None]
